FAERS Safety Report 9462759 (Version 1)
Quarter: 2013Q3

REPORT INFORMATION
  Report Type: Spontaneous
  Country: FR (occurrence: None)
  Receive Date: 20130814
  Receipt Date: 20130814
  Transmission Date: 20140515
  Serious: Yes (Hospitalization)
  Sender: FDA-Public Use
  Company Number: DSM-2013-00737

PATIENT
  Age: 77 Year
  Sex: Male
  Weight: 108 kg

DRUGS (4)
  1. OLMETEC (OLMESARTAN MEDOXOMIL) (TABLET) (OLMESARTAN MEDOXOMIL) [Suspect]
     Route: 048
  2. CELETOL (CELIPROLOL HYDRPCHLORIDE) (CELIPROLOL HYDROCHLORIDE) [Concomitant]
  3. ALDALIX (SPIRONOLACTONE, FUROSEMIDE) (SPIRONOLACTONE, FUROSEMIDE) [Concomitant]
  4. KARDEGIC (ACETYLSALICYLATE LYSINE) (75 MILLIGRAM )(ACETYLSALICYLATE LYSINE) [Concomitant]

REACTIONS (6)
  - Diarrhoea [None]
  - Weight decreased [None]
  - Vomiting [None]
  - Intestinal villi atrophy [None]
  - Dehydration [None]
  - Malnutrition [None]
